FAERS Safety Report 7472366-X (Version None)
Quarter: 2011Q2

REPORT INFORMATION
  Report Type: 
  Country: None (occurrence: None)
  Receive Date: 20110511
  Receipt Date: 20110427
  Transmission Date: 20111010
  Serious: Yes (Hospitalization)
  Sender: FDA-Public Use
  Company Number: PHHY2011TW36011

PATIENT
  Sex: Male
  Weight: 35 kg

DRUGS (2)
  1. EXJADE [Suspect]
     Dosage: 1000 MG, DAY
     Route: 048
     Dates: start: 20100220, end: 20110420
  2. EXJADE [Suspect]
     Indication: THALASSAEMIA BETA
     Dosage: 875 MG, DAY
     Route: 048
     Dates: start: 20091121, end: 20100219

REACTIONS (6)
  - LIVER ABSCESS [None]
  - LIP DRY [None]
  - ABDOMINAL TENDERNESS [None]
  - PYREXIA [None]
  - VOMITING [None]
  - ABDOMINAL PAIN UPPER [None]
